FAERS Safety Report 25859603 (Version 3)
Quarter: 2025Q4

REPORT INFORMATION
  Report Type: Report from Study
  Country: US (occurrence: US)
  Receive Date: 20250929
  Receipt Date: 20251112
  Transmission Date: 20260117
  Serious: No
  Sender: TAIHO ONCOLOGY INC
  Company Number: US-TAIHOP-2025-010358

PATIENT
  Sex: Male
  Weight: 92.99 kg

DRUGS (1)
  1. INQOVI [Suspect]
     Active Substance: CEDAZURIDINE\DECITABINE
     Indication: Myelodysplastic syndrome
     Dosage: 135 MG (DECITABINE 35 MG AND CEDAZURIDINE 100 MG) 1 TABLET IN THE MORNING ON DAYS 1 THROUGH 5 OF EAC
     Route: 048

REACTIONS (3)
  - Cytopenia [Unknown]
  - Blood pressure fluctuation [Unknown]
  - Platelet count decreased [Unknown]
